FAERS Safety Report 5602148-2 (Version None)
Quarter: 2008Q1

REPORT INFORMATION
  Report Type: 
  Country: None (occurrence: None)
  Receive Date: 20080125
  Receipt Date: 20080118
  Transmission Date: 20080703
  Serious: Yes (Other)
  Sender: FDA-Public Use
  Company Number: PHNU2008DE00633

PATIENT
  Age: 52 Year
  Sex: Male

DRUGS (3)
  1. IMMUNOSPORIN [Suspect]
     Indication: DERMATITIS ATOPIC
     Dosage: 300MG/DAY
  2. RAMIPRIL [Concomitant]
  3. VERAPAMIL [Concomitant]

REACTIONS (13)
  - BLOOD GLUCOSE FLUCTUATION [None]
  - BLOOD GLUCOSE INCREASED [None]
  - BLOOD PRESSURE FLUCTUATION [None]
  - COUGH [None]
  - DIZZINESS [None]
  - FALL [None]
  - FATIGUE [None]
  - HEADACHE [None]
  - HYPOTONIA [None]
  - MYALGIA [None]
  - PAIN IN EXTREMITY [None]
  - RENAL PAIN [None]
  - SYNCOPE [None]
